FAERS Safety Report 19995750 (Version 1)
Quarter: 2021Q4

REPORT INFORMATION
  Report Type: Spontaneous
  Country: GB (occurrence: GB)
  Receive Date: 20211025
  Receipt Date: 20211025
  Transmission Date: 20220303
  Serious: Yes (Life-Threatening, Other)
  Sender: FDA-Public Use
  Company Number: None

PATIENT
  Age: 20 Year
  Sex: Female
  Weight: 85 kg

DRUGS (1)
  1. MEDROXYPROGESTERONE ACETATE [Suspect]
     Active Substance: MEDROXYPROGESTERONE ACETATE
     Indication: Contraception
     Dosage: 150 MG
     Route: 030
     Dates: start: 20171218

REACTIONS (4)
  - Anaphylactic reaction [Recovered/Resolved]
  - Lip swelling [Unknown]
  - Malaise [Unknown]
  - Tachycardia [Unknown]

NARRATIVE: CASE EVENT DATE: 20211006
